FAERS Safety Report 4651539-5 (Version None)
Quarter: 2005Q2

REPORT INFORMATION
  Report Type: 
  Country: None (occurrence: None)
  Receive Date: 20050503
  Receipt Date: 20050426
  Transmission Date: 20051028
  Serious: Yes (Hospitalization, Other)
  Sender: FDA-Public Use
  Company Number: US-MERCK-0504USA04557

PATIENT
  Age: 40 Year
  Sex: Male

DRUGS (3)
  1. CANCIDAS [Suspect]
     Indication: OESOPHAGEAL CANDIDIASIS
     Route: 042
  2. CANCIDAS [Suspect]
     Indication: ORAL CANDIDIASIS
     Route: 042
  3. [THERAPY UNSPECIFIED] [Concomitant]
     Route: 065

REACTIONS (2)
  - ASPERGILLOMA [None]
  - THERAPY NON-RESPONDER [None]
